FAERS Safety Report 4673918-2 (Version None)
Quarter: 2005Q2

REPORT INFORMATION
  Report Type: 
  Country: None (occurrence: None)
  Receive Date: 20050524
  Receipt Date: 20050505
  Transmission Date: 20051028
  Serious: Yes (Hospitalization, Other)
  Sender: FDA-Public Use
  Company Number: EWC050443764

PATIENT
  Age: 83 Year
  Sex: Female

DRUGS (13)
  1. HUMULIN 70/30 [Suspect]
     Indication: DIABETES MELLITUS NON-INSULIN-DEPENDENT
     Dosage: 42 IU DAY
  2. EDNYT (ENALAPRIL MALEATE) [Concomitant]
  3. ADEXOR (TRIMETAZIDINE HYDROCHLORIDE) [Concomitant]
  4. RETAFYLLIN (THEOPHYLLINE) [Concomitant]
  5. FUROSEMIDE [Concomitant]
  6. UREGYT (ETACRYNIC ACID) [Concomitant]
  7. K CL TAB [Concomitant]
  8. NORMODIPINE (AMLODIPINE) [Concomitant]
  9. NOOTROPIL (PIRACETAM) [Concomitant]
  10. DIGIMERCK MINOR (DIGITOXIN) [Concomitant]
  11. ASPIRIN [Concomitant]
  12. TRENTAL [Concomitant]
  13. DOXIUM  (CALCIUM DOBESILATE) [Concomitant]

REACTIONS (10)
  - CAROTID ARTERY STENOSIS [None]
  - DISORIENTATION [None]
  - ENCEPHALOMALACIA [None]
  - HYPOGLYCAEMIC COMA [None]
  - LOSS OF CONSCIOUSNESS [None]
  - RESPIRATORY FAILURE [None]
  - SHOCK [None]
  - SOMNOLENCE [None]
  - ULTRASOUND SCAN ABNORMAL [None]
  - WEIGHT DECREASED [None]
